FAERS Safety Report 7554919-3 (Version None)
Quarter: 2011Q2

REPORT INFORMATION
  Report Type: 
  Country: None (occurrence: None)
  Receive Date: 20110617
  Receipt Date: 20110608
  Transmission Date: 20111010
  Serious: Yes (Hospitalization)
  Sender: FDA-Public Use
  Company Number: JP-ELI_LILLY_AND_COMPANY-JP201104005595

PATIENT
  Sex: Female

DRUGS (5)
  1. DAIKENTYUTO [Concomitant]
     Indication: PROPHYLAXIS
     Dosage: 7.5 G, QD
     Route: 048
     Dates: start: 20100831
  2. BYETTA [Suspect]
     Indication: TYPE 2 DIABETES MELLITUS
     Dosage: 5 UG, BID
     Route: 058
     Dates: start: 20110210, end: 20110418
  3. LANSOPRAZOLE [Concomitant]
     Indication: PROPHYLAXIS
     Dosage: 15 MG, QD
     Route: 048
     Dates: start: 20110408, end: 20110419
  4. SENNOSIDE [Concomitant]
     Indication: PROPHYLAXIS
     Dosage: 12 MG, BID
     Route: 048
     Dates: start: 20100831, end: 20110419
  5. MAGMITT [Concomitant]
     Indication: PROPHYLAXIS
     Dosage: 250 MG, TID
     Route: 048
     Dates: start: 20100831

REACTIONS (3)
  - OFF LABEL USE [None]
  - INTESTINAL OBSTRUCTION [None]
  - HYPOGLYCAEMIA [None]
